FAERS Safety Report 22278041 (Version 1)
Quarter: 2023Q2

REPORT INFORMATION
  Report Type: Spontaneous
  Country: FR (occurrence: FR)
  Receive Date: 20230503
  Receipt Date: 20230503
  Transmission Date: 20230722
  Serious: Yes (Hospitalization)
  Sender: FDA-Public Use
  Company Number: FR-SUN PHARMACEUTICAL INDUSTRIES LTD-2023RR-386876

PATIENT
  Age: 26 Year
  Sex: Female
  Weight: 88 kg

DRUGS (5)
  1. ACETAMINOPHEN [Suspect]
     Active Substance: ACETAMINOPHEN
     Indication: Toxicity to various agents
     Dosage: 40 GRAM, TOTAL 1
     Route: 048
     Dates: start: 20200806, end: 20200806
  2. IBUPROFEN [Suspect]
     Active Substance: IBUPROFEN
     Indication: Toxicity to various agents
     Dosage: 18 GRAM, TOTAL 1
     Route: 048
     Dates: start: 20200806, end: 20200806
  3. VENLAFAXINE [Suspect]
     Active Substance: VENLAFAXINE HYDROCHLORIDE
     Indication: Toxicity to various agents
     Dosage: 2250 MILLIGRAM, TOTAL 1
     Route: 048
     Dates: start: 20200806, end: 20200806
  4. LORMETAZEPAM [Suspect]
     Active Substance: LORMETAZEPAM
     Indication: Toxicity to various agents
     Dosage: 28 MILLIGRAM, TOTAL 1
     Route: 048
     Dates: start: 20200806, end: 20200806
  5. LEVOMEPROMAZINE [Suspect]
     Active Substance: LEVOMEPROMAZINE
     Indication: Toxicity to various agents
     Dosage: 0.5 GRAM, TOTAL 1
     Route: 048
     Dates: start: 20200806, end: 20200806

REACTIONS (5)
  - Hepatic cytolysis [Recovered/Resolved]
  - Analgesic drug level increased [Recovered/Resolved]
  - Acute kidney injury [Recovered/Resolved]
  - Intentional overdose [Recovered/Resolved]
  - Somnolence [Recovered/Resolved]

NARRATIVE: CASE EVENT DATE: 20200807
